FAERS Safety Report 19117847 (Version 1)
Quarter: 2021Q2

REPORT INFORMATION
  Report Type: Spontaneous
  Country: US (occurrence: US)
  Receive Date: 20210409
  Receipt Date: 20210409
  Transmission Date: 20210717
  Serious: Yes (Other)
  Sender: FDA-Public Use
  Company Number: US-JNJFOC-20210405005

PATIENT
  Age: 57 Year
  Sex: Female

DRUGS (2)
  1. SPRAVATO [Suspect]
     Active Substance: ESKETAMINE
     Indication: DEPRESSION SUICIDAL
     Dosage: 36 TOTAL DOSES, MOST RECENT DOSE 09?MAR?2021
     Dates: start: 20190823
  2. SPRAVATO [Suspect]
     Active Substance: ESKETAMINE
     Indication: DEPRESSION
     Dosage: 1 TOTAL DOSE
     Dates: start: 20190821, end: 20190821

REACTIONS (3)
  - Dissociation [Unknown]
  - Suicidal ideation [Unknown]
  - Irritability [Unknown]
